FAERS Safety Report 10407485 (Version 1)
Quarter: 2014Q3

REPORT INFORMATION
  Report Type: Spontaneous
  Country: US (occurrence: US)
  Receive Date: 20140825
  Receipt Date: 20140825
  Transmission Date: 20150326
  Serious: Yes (Death)
  Sender: FDA-Public Use
  Company Number: PHEH2014US016862

PATIENT
  Age: 70 Year
  Sex: Male

DRUGS (1)
  1. ZYKADIA [Suspect]
     Active Substance: CERITINIB
     Indication: NON-SMALL CELL LUNG CANCER METASTATIC
     Dosage: 750 MG, ONCE DAILY
     Route: 048
     Dates: start: 20140801

REACTIONS (1)
  - Bronchial haemorrhage [Fatal]

NARRATIVE: CASE EVENT DATE: 20140801
